FAERS Safety Report 23481026 (Version 4)
Quarter: 2024Q2

REPORT INFORMATION
  Report Type: Other
  Country: US (occurrence: US)
  Receive Date: 20240205
  Receipt Date: 20240521
  Transmission Date: 20240715
  Serious: No
  Sender: FDA-Public Use
  Company Number: US-TRAVERE-2024TVT00010

PATIENT
  Age: 53 Year
  Sex: Male

DRUGS (4)
  1. FILSPARI [Suspect]
     Active Substance: SPARSENTAN
     Indication: IgA nephropathy
     Route: 048
     Dates: start: 20231218
  2. FILSPARI [Suspect]
     Active Substance: SPARSENTAN
     Route: 048
     Dates: start: 20240106
  3. ALLOPURINOL [Suspect]
     Active Substance: ALLOPURINOL
     Indication: Product used for unknown indication
  4. HYDROCHLOROTHIAZIDE [Concomitant]
     Active Substance: HYDROCHLOROTHIAZIDE

REACTIONS (15)
  - Nasopharyngitis [Unknown]
  - Urine output decreased [Unknown]
  - Weight increased [Unknown]
  - Faeces hard [Unknown]
  - Dizziness [Unknown]
  - Frequent bowel movements [Unknown]
  - Fatigue [Unknown]
  - Heart rate increased [Unknown]
  - Protein urine present [Recovering/Resolving]
  - Fluid retention [Unknown]
  - COVID-19 [Unknown]
  - Ear disorder [Unknown]
  - Muscle spasms [Recovered/Resolved]
  - Glomerular filtration rate decreased [Unknown]
  - Protein total increased [Unknown]
